FAERS Safety Report 9540813 (Version 1)
Quarter: 2013Q3

REPORT INFORMATION
  Report Type: Spontaneous
  Country: US (occurrence: US)
  Receive Date: 20130920
  Receipt Date: 20130920
  Transmission Date: 20140515
  Serious: No
  Sender: FDA-Public Use
  Company Number: US-009507513-1309USA007381

PATIENT
  Age: 41 Year
  Sex: Male

DRUGS (4)
  1. TEMODAR [Suspect]
     Indication: NEOPLASM
     Dosage: 360 MG, QD ^FOR 5 DAYS^
     Route: 048
     Dates: start: 201206
  2. TEMODAR [Suspect]
     Dosage: UNK
     Route: 048
     Dates: start: 2003
  3. LEVOTHYROXINE SODIUM [Concomitant]
  4. HYDROCORT [Concomitant]

REACTIONS (9)
  - Visual acuity reduced [Not Recovered/Not Resolved]
  - Chest pain [Unknown]
  - Diplopia [Not Recovered/Not Resolved]
  - Balance disorder [Unknown]
  - Vision blurred [Not Recovered/Not Resolved]
  - Headache [Unknown]
  - Dizziness [Unknown]
  - Fatigue [Unknown]
  - Cough [Not Recovered/Not Resolved]
